FAERS Safety Report 13837406 (Version 1)
Quarter: 2017Q3

REPORT INFORMATION
  Report Type: Spontaneous
  Country: US (occurrence: US)
  Receive Date: 20170804
  Receipt Date: 20170804
  Transmission Date: 20171127
  Serious: No
  Sender: FDA-Public Use
  Company Number: US-ROCHE-781584

PATIENT
  Age: 69 Year
  Sex: Female

DRUGS (1)
  1. BONIVA [Suspect]
     Active Substance: IBANDRONATE SODIUM
     Indication: PRODUCT USED FOR UNKNOWN INDICATION
     Route: 065

REACTIONS (9)
  - Ear pain [Unknown]
  - Muscle spasms [Unknown]
  - Musculoskeletal chest pain [Unknown]
  - Anxiety [Unknown]
  - Abdominal discomfort [Unknown]
  - Gait disturbance [Unknown]
  - Neck pain [Unknown]
  - Arthralgia [Unknown]
  - Urinary tract infection [Unknown]
